FAERS Safety Report 6779576-5 (Version None)
Quarter: 2010Q2

REPORT INFORMATION
  Report Type: 
  Country: None (occurrence: None)
  Receive Date: 20100618
  Receipt Date: 20100610
  Transmission Date: 20101027
  Serious: No
  Sender: FDA-Public Use
  Company Number: A0862469A

PATIENT
  Age: 55 Year
  Sex: Male

DRUGS (4)
  1. AVODART [Suspect]
     Dosage: .5MG PER DAY
     Route: 065
     Dates: start: 20100517, end: 20100101
  2. LISINOPRIL [Concomitant]
     Dates: end: 20100501
  3. SIMVASTATIN [Concomitant]
  4. VITAMINS [Concomitant]

REACTIONS (1)
  - BLOOD PRESSURE DECREASED [None]
